FAERS Safety Report 8418965-X (Version None)
Quarter: 2012Q2

REPORT INFORMATION
  Report Type: 
  Country: None (occurrence: None)
  Receive Date: 20120607
  Receipt Date: 20120531
  Transmission Date: 20120825
  Serious: Yes (Hospitalization, Other)
  Sender: FDA-Public Use
  Company Number: PHFR2011GB04875

PATIENT
  Sex: Male
  Weight: 73 kg

DRUGS (4)
  1. AMISULPRIDE [Suspect]
     Dosage: 300 MG, DAILY
     Route: 048
     Dates: start: 20110601
  2. CLOZARIL [Suspect]
     Indication: SCHIZOPHRENIA
     Dosage: 225 MG
     Route: 048
     Dates: start: 20110708
  3. VALPROATE SODIUM [Concomitant]
     Dosage: 1.6 G, QD
     Route: 048
  4. CLOZARIL [Suspect]
     Dosage: 250 MG, QD
     Route: 048

REACTIONS (5)
  - BLOOD COUNT ABNORMAL [None]
  - SCHIZOPHRENIA, PARANOID TYPE [None]
  - TUBERCULOSIS [None]
  - EOSINOPHIL COUNT INCREASED [None]
  - MALAISE [None]
